FAERS Safety Report 8069438-8 (Version None)
Quarter: 2012Q1

REPORT INFORMATION
  Report Type: 
  Country: None (occurrence: None)
  Receive Date: 20120119
  Receipt Date: 20120106
  Transmission Date: 20120608
  Serious: Yes (Hospitalization)
  Sender: FDA-Public Use
  Company Number: JPI-P-018982

PATIENT
  Age: 56 Year
  Sex: Male

DRUGS (5)
  1. METHAMPHETAMINE HYDROCHLORIDE [Suspect]
     Indication: PRODUCT USED FOR UNKNOWN INDICATION
  2. ALPRAZOLAM [Suspect]
     Indication: PRODUCT USED FOR UNKNOWN INDICATION
  3. QUETIAPINE FUMARATE [Concomitant]
  4. XYREM [Suspect]
     Indication: CATAPLEXY
     Dosage: 6 GM (3 GM, 2 IN 1 D), ORAL;9 GM 9 4.5 GM,PERIODICALLY TAKING HIS DOSES)ORAL
     Route: 048
     Dates: start: 20110914
  5. XYREM [Suspect]
     Indication: CATAPLEXY
     Dosage: 6 GM (3 GM, 2 IN 1 D), ORAL;9 GM 9 4.5 GM,PERIODICALLY TAKING HIS DOSES)ORAL
     Route: 048
     Dates: start: 20080410

REACTIONS (2)
  - DYSPNOEA [None]
  - CIRCULATORY COLLAPSE [None]
